FAERS Safety Report 9230048 (Version 1)
Quarter: 2013Q2

REPORT INFORMATION
  Report Type: Spontaneous
  Country: FR (occurrence: FR)
  Receive Date: 20130415
  Receipt Date: 20130415
  Transmission Date: 20140414
  Serious: Yes (Hospitalization)
  Sender: FDA-Public Use
  Company Number: FR-JNJFOC-20130403526

PATIENT
  Age: 57 Year
  Sex: Male

DRUGS (11)
  1. XARELTO [Suspect]
     Indication: PRODUCT USED FOR UNKNOWN INDICATION
     Route: 048
     Dates: start: 201210
  2. EUCREAS [Concomitant]
     Route: 065
  3. GLUCOR [Concomitant]
     Route: 065
  4. DIAMICRON MR [Concomitant]
     Route: 065
  5. DIGOXIN [Concomitant]
     Route: 065
  6. LERCAN [Concomitant]
     Route: 065
  7. TENORMINE [Concomitant]
     Route: 065
  8. TRIATEC [Concomitant]
     Route: 065
  9. LIPANTHYL [Concomitant]
     Route: 065
  10. METFORMIN [Concomitant]
     Indication: PRODUCT USED FOR UNKNOWN INDICATION
     Route: 065
  11. INEXIUM [Concomitant]
     Route: 065

REACTIONS (1)
  - Hyperglycaemia [Unknown]
